FAERS Safety Report 24856657 (Version 1)
Quarter: 2025Q1

REPORT INFORMATION
  Report Type: Report from Study
  Country: PH (occurrence: PH)
  Receive Date: 20250117
  Receipt Date: 20250117
  Transmission Date: 20250409
  Serious: Yes (Death)
  Sender: OTSUKA
  Company Number: PH-OTSUKA-2025_001084

PATIENT
  Age: 74 Year
  Sex: Male

DRUGS (1)
  1. TOLVAPTAN [Suspect]
     Active Substance: TOLVAPTAN
     Indication: Cardiac failure
     Dosage: 1 DF, QD (15 MG 1 TABLET ONCE A DAY)
     Route: 048

REACTIONS (1)
  - Ill-defined disorder [Fatal]

NARRATIVE: CASE EVENT DATE: 20250107
